FAERS Safety Report 6168578-8 (Version None)
Quarter: 2009Q2

REPORT INFORMATION
  Report Type: 
  Country: None (occurrence: None)
  Receive Date: 20090423
  Receipt Date: 20090415
  Transmission Date: 20091009
  Serious: Yes (Hospitalization)
  Sender: FDA-Public Use
  Company Number: 2009SP007617

PATIENT
  Age: 49 Year
  Sex: Male
  Weight: 86 kg

DRUGS (9)
  1. BOCEPREVIR (SCH 503034) [Suspect]
     Indication: HEPATITIS C
     Dosage: 800 MG;TID;PO
     Route: 048
     Dates: start: 20081229
  2. PEG-INTRON [Suspect]
     Indication: HEPATITIS C
     Dosage: 150 MCG;QW;SC
     Route: 058
     Dates: start: 20081203
  3. REBETOL [Suspect]
     Indication: HEPATITIS C
     Dosage: 1200 MG;QD;PO
     Route: 048
     Dates: start: 20081203
  4. EPREX [Suspect]
     Indication: ANAEMIA
     Dosage: ;QW;, ;BIW;
     Dates: start: 20090213, end: 20090315
  5. EPREX [Suspect]
     Indication: ANAEMIA
     Dosage: ;QW;, ;BIW;
     Dates: start: 20090316, end: 20090403
  6. TERCAIN [Concomitant]
  7. ATHYMIL [Concomitant]
  8. INIPOMP [Concomitant]
  9. XANAX [Concomitant]

REACTIONS (2)
  - PHLEBITIS [None]
  - PULMONARY EMBOLISM [None]
